FAERS Safety Report 10056365 (Version 2)
Quarter: 2014Q3

REPORT INFORMATION
  Report Type: Spontaneous
  Country: IT (occurrence: None)
  Receive Date: 20140401
  Receipt Date: 20140721
  Transmission Date: 20150326
  Serious: Yes (Other)
  Sender: FDA-Public Use
  Company Number: AUR-APL-2014-03908

PATIENT
  Age: 35 Year
  Sex: Female

DRUGS (1)
  1. METOPROLOL AUROBINDO 100 MG COMPRESSIVE RIVESTITE CON FILM (METOPROLOL) FILM-COATED TABLET, 100MG [Suspect]
     Active Substance: METOPROLOL
     Indication: PRODUCT USED FOR UNKNOWN INDICATION
     Dosage: 1/D
     Route: 048
     Dates: start: 20130123, end: 20140122

REACTIONS (1)
  - Syncope [None]

NARRATIVE: CASE EVENT DATE: 20140122
